FAERS Safety Report 6489906-X (Version None)
Quarter: 2009Q4

REPORT INFORMATION
  Report Type: 
  Country: None (occurrence: None)
  Receive Date: 20091211
  Receipt Date: 20091203
  Transmission Date: 20100525
  Serious: Yes (Hospitalization, Other)
  Sender: FDA-Public Use
  Company Number: US-JNJFOC-20091202389

PATIENT
  Sex: Female
  Weight: 68.04 kg

DRUGS (5)
  1. DURAGESIC-100 [Suspect]
     Indication: MUSCULOSKELETAL PAIN
     Dosage: 100UG+100UG  NDC#: 50458-036-05
     Route: 062
     Dates: start: 20050101, end: 20091101
  2. DURAGESIC-100 [Suspect]
     Dosage: NDC#: 50458-094-05
     Route: 062
     Dates: start: 20091101
  3. CYMBALTA [Concomitant]
     Indication: DEPRESSION
     Route: 048
  4. AMBIEN CR [Concomitant]
     Indication: SLEEP DISORDER
     Dosage: AT BED TIME AS NECESSARY
     Route: 048
     Dates: start: 20050101
  5. OXYCODONE [Concomitant]
     Indication: BREAKTHROUGH PAIN
     Route: 048
     Dates: start: 20070101

REACTIONS (3)
  - ROAD TRAFFIC ACCIDENT [None]
  - SENSORY LOSS [None]
  - WRONG TECHNIQUE IN DRUG USAGE PROCESS [None]
